FAERS Safety Report 5167278-0 (Version None)
Quarter: 2006Q4

REPORT INFORMATION
  Report Type: 
  Country: None (occurrence: None)
  Receive Date: 20061129
  Receipt Date: 20061117
  Transmission Date: 20070319
  Serious: Yes (Hospitalization)
  Sender: FDA-Public Use
  Company Number: HQWYE638226OCT06

PATIENT
  Age: 45 Year
  Sex: Female

DRUGS (5)
  1. PANTOPRAZOLE SODIUM [Suspect]
     Indication: OESOPHAGITIS
     Dosage: 40 MG 1X PER 1 DAY ORAL
     Route: 048
     Dates: start: 20061011, end: 20061017
  2. GLUCOR (ACARBOSE) [Concomitant]
  3. ATORVASTATIN CALCIUM [Concomitant]
  4. LEVOTHYROXINE SODIUM [Concomitant]
  5. ASPIRIN [Concomitant]

REACTIONS (4)
  - CYTOLYTIC HEPATITIS [None]
  - HEPATIC STEATOSIS [None]
  - HEPATOMEGALY [None]
  - SERUM FERRITIN INCREASED [None]
